FAERS Safety Report 26043913 (Version 1)
Quarter: 2025Q4

REPORT INFORMATION
  Report Type: Spontaneous
  Country: EU (occurrence: EU)
  Receive Date: 20251114
  Receipt Date: 20251114
  Transmission Date: 20260117
  Serious: Yes (Hospitalization)
  Sender: BRISTOL-MYERS SQUIBB COMPANY
  Company Number: None

PATIENT
  Age: 77 Year
  Sex: Male
  Weight: 95 kg

DRUGS (6)
  1. LENALIDOMIDE [Suspect]
     Active Substance: LENALIDOMIDE
     Indication: Plasma cell myeloma
     Route: 048
     Dates: start: 20250513, end: 20250605
  2. LENALIDOMIDE [Suspect]
     Active Substance: LENALIDOMIDE
     Route: 048
     Dates: start: 20250710, end: 20250731
  3. TECVAYLI [Suspect]
     Active Substance: TECLISTAMAB-CQYV
     Indication: Plasma cell myeloma
     Route: 058
     Dates: start: 20250415
  4. VALACYCLOVIR HYDROCHLORIDE [Suspect]
     Active Substance: VALACYCLOVIR HYDROCHLORIDE
     Indication: Infection prophylaxis
     Route: 048
     Dates: start: 20250415
  5. AMOXICILLIN [Suspect]
     Active Substance: AMOXICILLIN
     Indication: Infection prophylaxis
     Route: 048
     Dates: start: 20250415
  6. BACTRIM [Suspect]
     Active Substance: SULFAMETHOXAZOLE\TRIMETHOPRIM
     Indication: Opportunistic infection prophylaxis
     Route: 048
     Dates: start: 20250415

REACTIONS (1)
  - Eczema [Not Recovered/Not Resolved]

NARRATIVE: CASE EVENT DATE: 20250531
